FAERS Safety Report 10308825 (Version 1)
Quarter: 2014Q3

REPORT INFORMATION
  Report Type: Report from Study
  Country: CA (occurrence: CA)
  Receive Date: 20140716
  Receipt Date: 20140716
  Transmission Date: 20150326
  Serious: Yes (Other)
  Sender: FDA-Public Use
  Company Number: CA-JNJFOC-20140706900

PATIENT
  Sex: Female
  Weight: 47 kg

DRUGS (7)
  1. RISEDRONATE [Concomitant]
     Active Substance: RISEDRONATE SODIUM
     Route: 048
  2. REMICADE [Suspect]
     Active Substance: INFLIXIMAB
     Indication: RHEUMATOID ARTHRITIS
     Route: 042
     Dates: start: 2003
  3. METOPROLOL [Concomitant]
     Active Substance: METOPROLOL
     Route: 048
  4. FOLIC ACID. [Concomitant]
     Active Substance: FOLIC ACID
     Route: 048
  5. ASA [Concomitant]
     Active Substance: ASPIRIN
     Route: 048
  6. TRAVATAN [Concomitant]
     Active Substance: TRAVOPROST
     Dosage: ONE DROP EACH EYE.
     Route: 065
  7. METHOTREXATE [Concomitant]
     Active Substance: METHOTREXATE
     Route: 065

REACTIONS (2)
  - Age-related macular degeneration [Unknown]
  - Eye infection intraocular [Unknown]

NARRATIVE: CASE EVENT DATE: 2014
